FAERS Safety Report 15805832 (Version 1)
Quarter: 2019Q1

REPORT INFORMATION
  Report Type: Spontaneous
  Country: AU (occurrence: AU)
  Receive Date: 20190110
  Receipt Date: 20190110
  Transmission Date: 20190417
  Serious: Yes (Hospitalization)
  Sender: FDA-Public Use
  Company Number: AU-IPSEN BIOPHARMACEUTICALS, INC.-2018-18931

PATIENT
  Sex: Male

DRUGS (4)
  1. GASTROSTOP [Concomitant]
  2. CODEINE [Concomitant]
     Active Substance: CODEINE
  3. SOMATULINE [Suspect]
     Active Substance: LANREOTIDE ACETATE
     Indication: PRODUCT USED FOR UNKNOWN INDICATION
  4. XERMELO [Suspect]
     Active Substance: TELOTRISTAT ETHYL
     Indication: DIARRHOEA
     Dates: start: 201812

REACTIONS (2)
  - Therapy change [Unknown]
  - Diarrhoea [Not Recovered/Not Resolved]
